FAERS Safety Report 19375069 (Version 4)
Quarter: 2021Q3

REPORT INFORMATION
  Report Type: Spontaneous
  Country: US (occurrence: US)
  Receive Date: 20210604
  Receipt Date: 20210728
  Transmission Date: 20211014
  Serious: No
  Sender: FDA-Public Use
  Company Number: US-KARYOPHARM-2021KPT000505

PATIENT

DRUGS (1)
  1. XPOVIO [Suspect]
     Active Substance: SELINEXOR
     Indication: PLASMA CELL MYELOMA
     Dosage: 80 MG, 2X/WEEK
     Route: 048
     Dates: start: 20210329, end: 202105

REACTIONS (10)
  - Constipation [Unknown]
  - Decreased appetite [Unknown]
  - Bladder prolapse [Unknown]
  - Rhinorrhoea [Unknown]
  - Asthenia [Unknown]
  - Joint swelling [Unknown]
  - Flushing [Recovered/Resolved]
  - Diarrhoea [Unknown]
  - Syncope [Unknown]
  - Fatigue [Not Recovered/Not Resolved]

NARRATIVE: CASE EVENT DATE: 202103
